FAERS Safety Report 13101044 (Version 1)
Quarter: 2017Q1

REPORT INFORMATION
  Report Type: Spontaneous
  Country: US (occurrence: US)
  Receive Date: 20170110
  Receipt Date: 20170110
  Transmission Date: 20170428
  Serious: Yes (Hospitalization)
  Sender: FDA-Public Use
  Company Number: None

PATIENT
  Age: 50 Year
  Sex: Female
  Weight: 73.18 kg

DRUGS (1)
  1. INTRON A [Suspect]
     Active Substance: INTERFERON ALFA-2B
     Dosage: TOTAL DOSE ADMINISTERED - 6 MILLION IU
     Dates: end: 20161226

REACTIONS (5)
  - Nausea [None]
  - Abdominal pain [None]
  - Chest pain [None]
  - Cholelithiasis [None]
  - Vomiting [None]

NARRATIVE: CASE EVENT DATE: 20161227
